FAERS Safety Report 7961870-3 (Version None)
Quarter: 2011Q4

REPORT INFORMATION
  Report Type: 
  Country: None (occurrence: None)
  Receive Date: 20111207
  Receipt Date: 20111125
  Transmission Date: 20120403
  Serious: Yes (Disabling)
  Sender: FDA-Public Use
  Company Number: DK-JNJFOC-20111202340

PATIENT
  Sex: Female

DRUGS (4)
  1. VARENICLINE TARTRATE [Interacting]
     Dosage: ONCE A DAY
     Route: 048
  2. TRAMADOL HCL [Suspect]
     Indication: BACK PAIN
     Dosage: THRICE A DAY
     Route: 065
  3. ATORVASTATIN CALCIUM [Concomitant]
     Indication: BLOOD CHOLESTEROL
     Route: 065
  4. VARENICLINE TARTRATE [Interacting]
     Indication: SMOKING CESSATION THERAPY
     Dosage: ONCE A DAY
     Route: 048

REACTIONS (3)
  - DRUG EFFECT DECREASED [None]
  - PAIN [None]
  - DRUG INTERACTION [None]
